FAERS Safety Report 7643854-8 (Version None)
Quarter: 2011Q3

REPORT INFORMATION
  Report Type: 
  Country: None (occurrence: None)
  Receive Date: 20110729
  Receipt Date: 20100805
  Transmission Date: 20111222
  Serious: No
  Sender: FDA-Public Use
  Company Number: US-GLAXOSMITHKLINE-A0874235A

PATIENT
  Age: 25 Year
  Sex: Female

DRUGS (2)
  1. SUMATRIPTAN SUCCINATE [Suspect]
     Indication: MIGRAINE
     Dosage: 100MG AS REQUIRED
     Route: 048
     Dates: start: 20100101, end: 20100701
  2. ALBUTEROL SULFATE AUTOHALER [Concomitant]

REACTIONS (3)
  - VISION BLURRED [None]
  - NAUSEA [None]
  - DIZZINESS [None]
